FAERS Safety Report 9511737 (Version 2)
Quarter: 2013Q3

REPORT INFORMATION
  Report Type: Spontaneous
  Country: DE (occurrence: DE)
  Receive Date: 20130910
  Receipt Date: 20130918
  Transmission Date: 20140515
  Serious: Yes (Other)
  Sender: FDA-Public Use
  Company Number: DE-JNJFOC-20130902309

PATIENT
  Age: 19 Year
  Sex: Female
  Weight: 49 kg

DRUGS (4)
  1. HALDOL [Suspect]
     Indication: PRODUCT USED FOR UNKNOWN INDICATION
     Dosage: TOTAL DOSE - 1000 MG
     Route: 048
     Dates: start: 20130904, end: 20130904
  2. CIATYL-Z ACUPHASE [Suspect]
     Indication: PRODUCT USED FOR UNKNOWN INDICATION
     Dosage: TOTAL DOSE - 500 MG
     Route: 048
     Dates: start: 20130904, end: 20130904
  3. DOMINAL [Suspect]
     Indication: PRODUCT USED FOR UNKNOWN INDICATION
     Route: 048
     Dates: start: 20130904, end: 20130904
  4. NEUROCIL [Suspect]
     Indication: PRODUCT USED FOR UNKNOWN INDICATION
     Route: 048
     Dates: start: 20130904, end: 20130904

REACTIONS (3)
  - Suicide attempt [Unknown]
  - Overdose [Unknown]
  - Somnolence [Unknown]
